FAERS Safety Report 5778816-9 (Version None)
Quarter: 2008Q2

REPORT INFORMATION
  Report Type: 
  Country: None (occurrence: None)
  Receive Date: 20080619
  Receipt Date: 20080617
  Transmission Date: 20081010
  Serious: Yes (Death, Other)
  Sender: FDA-Public Use
  Company Number: PHRM2008FR01525

PATIENT
  Sex: Male
  Weight: 60 kg

DRUGS (2)
  1. ZOMETA [Suspect]
     Indication: METASTASES TO BONE
     Dosage: 4 MG, QMO
     Route: 042
     Dates: start: 20080327, end: 20080505
  2. TARCEVA [Suspect]
     Dosage: 100 MG, QD
     Route: 048

REACTIONS (4)
  - GINGIVAL ULCERATION [None]
  - MALIGNANT NEOPLASM PROGRESSION [None]
  - OSTEONECROSIS [None]
  - TOOTH RESORPTION [None]
